FAERS Safety Report 25883717 (Version 3)
Quarter: 2025Q4

REPORT INFORMATION
  Report Type: Spontaneous
  Country: US (occurrence: US)
  Receive Date: 20251006
  Receipt Date: 20251021
  Transmission Date: 20260118
  Serious: No
  Sender: LUPIN
  Company Number: US-LUPIN PHARMACEUTICALS INC.-2025-08912

PATIENT
  Age: 64 Year
  Weight: 58.503 kg

DRUGS (3)
  1. MAGNESIUM SULFATE\POTASSIUM SULFATE\SODIUM SULFATE [Suspect]
     Active Substance: MAGNESIUM SULFATE\POTASSIUM SULFATE\SODIUM SULFATE
     Indication: Bowel preparation
     Dosage: AT NIGHT AND STARTED THE SECOND BOTTLE NEXT MORNING
  2. ZYRTEC [Concomitant]
     Active Substance: CETIRIZINE HYDROCHLORIDE
     Indication: Hypersensitivity
     Dosage: UNK
     Route: 065
  3. SINGULAIR [Concomitant]
     Active Substance: MONTELUKAST SODIUM
     Indication: Asthma
     Dosage: UNK
     Route: 065

REACTIONS (9)
  - Rash [Unknown]
  - Abdominal pain upper [Unknown]
  - Headache [Unknown]
  - Hypertension [Unknown]
  - Insomnia [Unknown]
  - Dry mouth [Unknown]
  - Drug ineffective [Unknown]
  - Product taste abnormal [Unknown]
  - Product dispensing error [Unknown]
